FAERS Safety Report 7314748-2 (Version None)
Quarter: 2011Q1

REPORT INFORMATION
  Report Type: 
  Country: None (occurrence: None)
  Receive Date: 20110225
  Receipt Date: 20101213
  Transmission Date: 20110831
  Serious: No
  Sender: FDA-Public Use
  Company Number: US-MYLANLABS-2010S1021805

PATIENT
  Age: 27 Year
  Sex: Female

DRUGS (3)
  1. AMNESTEEM [Suspect]
     Indication: ACNE CYSTIC
     Route: 048
     Dates: start: 20100730, end: 20100831
  2. YAZ /01502501/ [Concomitant]
  3. MULTI-VITAMIN [Concomitant]

REACTIONS (2)
  - EAR DISCOMFORT [None]
  - ARTHRALGIA [None]
